FAERS Safety Report 13968264 (Version 1)
Quarter: 2017Q3

REPORT INFORMATION
  Report Type: Spontaneous
  Country: US (occurrence: US)
  Receive Date: 20170914
  Receipt Date: 20170914
  Transmission Date: 20171128
  Serious: No
  Sender: FDA-Public Use
  Company Number: US-PERRIGO-16US023044

PATIENT
  Sex: Female

DRUGS (1)
  1. MINOXIDIL. [Suspect]
     Active Substance: MINOXIDIL
     Indication: PRODUCT USED FOR UNKNOWN INDICATION
     Dosage: UNKNOWN, QD
     Route: 061
     Dates: start: 201612

REACTIONS (2)
  - Inappropriate schedule of drug administration [Unknown]
  - Hypertrichosis [Unknown]

NARRATIVE: CASE EVENT DATE: 201612
